FAERS Safety Report 6049778-4 (Version None)
Quarter: 2009Q1

REPORT INFORMATION
  Report Type: 
  Country: None (occurrence: None)
  Receive Date: 20090121
  Receipt Date: 20080505
  Transmission Date: 20090719
  Serious: Yes (Other)
  Sender: FDA-Public Use
  Company Number: HQWYE727402AUG06

PATIENT
  Age: 64 Year
  Sex: Female

DRUGS (6)
  1. PREMPRO [Suspect]
     Indication: HORMONE REPLACEMENT THERAPY
  2. PREMPRO [Suspect]
     Indication: OSTEOPOROSIS
  3. PREMARIN [Suspect]
     Indication: OESTROGEN REPLACEMENT THERAPY
  4. PREMARIN [Suspect]
     Indication: OSTEOPOROSIS
  5. PROVERA [Suspect]
     Indication: HORMONE REPLACEMENT THERAPY
  6. PROVERA [Suspect]
     Indication: OSTEOPOROSIS

REACTIONS (1)
  - BREAST CANCER IN SITU [None]
